FAERS Safety Report 13710735 (Version 1)
Quarter: 2017Q3

REPORT INFORMATION
  Report Type: Spontaneous
  Country: US (occurrence: US)
  Receive Date: 20170703
  Receipt Date: 20170703
  Transmission Date: 20171127
  Serious: No
  Sender: FDA-Public Use
  Company Number: US-GLAXOSMITHKLINE-US2017101245

PATIENT
  Age: 52 Year
  Sex: Female

DRUGS (10)
  1. NOVOLOG MIX 70/30 [Concomitant]
     Active Substance: INSULIN ASPART
  2. NUCALA [Suspect]
     Active Substance: MEPOLIZUMAB
     Indication: ASTHMA
     Dosage: 100 MG, UNK
     Route: 058
     Dates: start: 20170616
  3. ALBUTEROL. [Concomitant]
     Active Substance: ALBUTEROL
  4. CETIRIZINE [Concomitant]
     Active Substance: CETIRIZINE HYDROCHLORIDE
  5. TOUJEO [Concomitant]
     Active Substance: INSULIN GLARGINE
  6. MUPIROCIN. [Concomitant]
     Active Substance: MUPIROCIN
  7. BENADRYL [Concomitant]
     Active Substance: DIPHENHYDRAMINE HYDROCHLORIDE
  8. BREO ELLIPTA [Concomitant]
     Active Substance: FLUTICASONE FUROATE\VILANTEROL TRIFENATATE
  9. CLOBETASOL [Concomitant]
     Active Substance: CLOBETASOL
  10. PROAIR HFA [Concomitant]
     Active Substance: ALBUTEROL SULFATE

REACTIONS (7)
  - Headache [Recovered/Resolved]
  - Insomnia [Unknown]
  - Ill-defined disorder [Unknown]
  - Wheezing [Not Recovered/Not Resolved]
  - Chest discomfort [Unknown]
  - Paraesthesia [Not Recovered/Not Resolved]
  - Restless legs syndrome [Unknown]

NARRATIVE: CASE EVENT DATE: 201706
